FAERS Safety Report 14860063 (Version 3)
Quarter: 2023Q4

REPORT INFORMATION
  Report Type: Spontaneous
  Country: FR (occurrence: FR)
  Receive Date: 20180508
  Receipt Date: 20231208
  Transmission Date: 20240110
  Serious: Yes (Life-Threatening, Hospitalization, Other)
  Sender: FDA-Public Use
  Company Number: FR-NOVPHSZ-PHHY2017FR081524

PATIENT
  Age: 51 Year
  Sex: Male
  Weight: 89 kg

DRUGS (9)
  1. OXYCODONE [Suspect]
     Active Substance: OXYCODONE
     Indication: Pain
     Dosage: 10 MG, Q4H
     Route: 065
  2. OXYCODONE [Suspect]
     Active Substance: OXYCODONE
     Dosage: 60 MG, BID
     Route: 065
     Dates: start: 20160412, end: 20160423
  3. DIAZEPAM [Interacting]
     Active Substance: DIAZEPAM
     Indication: Product used for unknown indication
     Dosage: 6 MG, UNK
     Route: 048
  4. DIAZEPAM [Interacting]
     Active Substance: DIAZEPAM
     Dosage: 400 MILLIGRAM, QD
     Route: 048
  5. FLUCONAZOLE [Interacting]
     Active Substance: FLUCONAZOLE
     Indication: Urinary tract infection fungal
     Dosage: 800 MILLIGRAM, QD
     Route: 042
     Dates: start: 20160422, end: 20160422
  6. FLUCONAZOLE [Interacting]
     Active Substance: FLUCONAZOLE
     Dosage: 400 MG, QD
     Route: 065
     Dates: start: 20160422
  7. FLUCONAZOLE [Interacting]
     Active Substance: FLUCONAZOLE
     Dosage: 400 MG, UNK
     Route: 042
  8. PREGABALIN [Interacting]
     Active Substance: PREGABALIN
     Indication: Product used for unknown indication
     Dosage: 400 MG, QD
     Route: 048
  9. PREGABALIN [Interacting]
     Active Substance: PREGABALIN
     Dosage: 6 MILLIGRAM, QD
     Route: 048

REACTIONS (2)
  - Drug interaction [Recovering/Resolving]
  - Respiratory depression [Recovered/Resolved]

NARRATIVE: CASE EVENT DATE: 20160423
